FAERS Safety Report 18519847 (Version 2)
Quarter: 2020Q4

REPORT INFORMATION
  Report Type: Spontaneous
  Country: US (occurrence: US)
  Receive Date: 20201118
  Receipt Date: 20201231
  Transmission Date: 20210114
  Serious: No
  Sender: FDA-Public Use
  Company Number: US-009507513-2011USA005988

PATIENT
  Age: 80 Year
  Sex: Female

DRUGS (6)
  1. PROVENTIL [Suspect]
     Active Substance: ALBUTEROL
     Indication: ASTHMA
     Dosage: 90 MICROGRAM /2 INHALATIONS EVERY 4-6 HOURS AS NEEDED
     Route: 055
     Dates: start: 2000
  2. CLARITIN [Concomitant]
     Active Substance: LORATADINE
  3. LATANOPROST. [Concomitant]
     Active Substance: LATANOPROST
  4. XIIDRA [Concomitant]
     Active Substance: LIFITEGRAST
  5. ADVAIR HFA [Concomitant]
     Active Substance: FLUTICASONE PROPIONATE\SALMETEROL XINAFOATE
  6. PANTOPRAZOLE [Concomitant]
     Active Substance: PANTOPRAZOLE

REACTIONS (8)
  - Chest discomfort [Recovering/Resolving]
  - Device malfunction [Unknown]
  - Incorrect dose administered [Unknown]
  - Circumstance or information capable of leading to medication error [Unknown]
  - Lower respiratory tract congestion [Recovering/Resolving]
  - Feeling abnormal [Recovering/Resolving]
  - Poor quality device used [Unknown]
  - Drug dose omission by device [Unknown]

NARRATIVE: CASE EVENT DATE: 202011
